FAERS Safety Report 14834453 (Version 1)
Quarter: 2018Q2

REPORT INFORMATION
  Report Type: Not Available
  Country: US (occurrence: US)
  Receive Date: 20180501
  Receipt Date: 20180501
  Transmission Date: 20180711
  Serious: Yes (Hospitalization)
  Sender: FDA-Public Use
  Company Number: US-NUSKIN-2018-US-006551

PATIENT
  Age: 58 Year
  Sex: Female
  Weight: 106.6 kg

DRUGS (4)
  1. BABY ASPIRIN [Concomitant]
     Active Substance: ASPIRIN
  2. DIGESTIVE ENZYMES [Concomitant]
     Active Substance: UNSPECIFIED INGREDIENT
  3. AP-24 WHITENING [Suspect]
     Active Substance: SODIUM MONOFLUOROPHOSPHATE
     Indication: DENTAL CARE
     Dosage: 1X/DAY
     Route: 048
     Dates: start: 20171221, end: 20180106
  4. PROBIOTIC [Concomitant]
     Active Substance: PROBIOTICS NOS

REACTIONS (13)
  - Facial pain [Recovered/Resolved]
  - Electrocardiogram abnormal [None]
  - Gastrointestinal disorder [None]
  - Chest pain [Recovered/Resolved]
  - Pruritus [Recovered/Resolved]
  - Swelling [Recovered/Resolved]
  - Erythema [Recovered/Resolved]
  - Cytology abnormal [Unknown]
  - Pulmonary mass [Unknown]
  - Eye swelling [None]
  - Infection [None]
  - Inflammation [None]
  - Skin exfoliation [Recovered/Resolved]

NARRATIVE: CASE EVENT DATE: 20180105
